FAERS Safety Report 4618105-9 (Version None)
Quarter: 2005Q1

REPORT INFORMATION
  Report Type: 
  Country: None (occurrence: None)
  Receive Date: 20050324
  Receipt Date: 20040830
  Transmission Date: 20050727
  Serious: Yes (Death)
  Sender: FDA-Public Use
  Company Number: AU-SANOFI-SYNTHELABO-A01200404133

PATIENT
  Age: 31 Year
  Sex: Male
  Weight: 70 kg

DRUGS (1)
  1. STILNOX [Suspect]
     Indication: INSOMNIA
     Dosage: PRESCRIPTION OF 7 TABLETS
     Route: 065
     Dates: start: 20040623

REACTIONS (6)
  - COMPLETED SUICIDE [None]
  - CONDITION AGGRAVATED [None]
  - FEAR [None]
  - INJURY ASPHYXIATION [None]
  - OVERDOSE [None]
  - PARANOIA [None]
